FAERS Safety Report 18416978 (Version 6)
Quarter: 2022Q4

REPORT INFORMATION
  Report Type: Spontaneous
  Country: US (occurrence: US)
  Receive Date: 20201022
  Receipt Date: 20221130
  Transmission Date: 20230112
  Serious: Yes (Hospitalization, Other)
  Sender: FDA-Public Use
  Company Number: US-PFIZER INC-2020405631

PATIENT
  Age: 60 Year
  Sex: Male

DRUGS (5)
  1. INLYTA [Suspect]
     Active Substance: AXITINIB
     Indication: Renal cancer
     Dosage: 5 MG, UNK
     Route: 048
  2. INLYTA [Suspect]
     Active Substance: AXITINIB
     Dosage: 10 MG, CYCLIC (1 TABLET BY MOUTH TWICE DAILY FOR 28 DAYS FOLLOWED BY 14 DAYS OFF)
     Route: 048
  3. INLYTA [Suspect]
     Active Substance: AXITINIB
     Dosage: 5 MG, ALTERNATE DAY (1 TABLET BY MOUTH ONCE EVERY OTHER DAY)
     Route: 048
  4. INLYTA [Suspect]
     Active Substance: AXITINIB
     Dosage: 5 MG
     Dates: start: 20210901
  5. INLYTA [Suspect]
     Active Substance: AXITINIB
     Dosage: 5 MG
     Dates: start: 20210922

REACTIONS (10)
  - Coronary artery thrombosis [Unknown]
  - Product dose omission issue [Unknown]
  - Back pain [Unknown]
  - Dry mouth [Unknown]
  - Oropharyngeal pain [Unknown]
  - Odynophagia [Unknown]
  - Dizziness [Not Recovered/Not Resolved]
  - Abdominal pain upper [Not Recovered/Not Resolved]
  - Blood glucose increased [Unknown]
  - Fatigue [Unknown]
